FAERS Safety Report 20483847 (Version 2)
Quarter: 2022Q1

REPORT INFORMATION
  Report Type: Report from Study
  Country: US (occurrence: US)
  Receive Date: 20220217
  Receipt Date: 20220307
  Transmission Date: 20220424
  Serious: No
  Sender: FDA-Public Use
  Company Number: US-BIOVITRUM-2022US02216

PATIENT
  Sex: Female

DRUGS (1)
  1. KINERET [Suspect]
     Active Substance: ANAKINRA
     Indication: Rheumatoid arthritis
     Route: 058
     Dates: start: 202201

REACTIONS (5)
  - Urinary tract infection [Unknown]
  - Fear [Unknown]
  - Muscular weakness [Unknown]
  - Injection site pain [Unknown]
  - Injection site irritation [Unknown]
